FAERS Safety Report 6444239-2 (Version None)
Quarter: 2009Q4

REPORT INFORMATION
  Report Type: 
  Country: None (occurrence: None)
  Receive Date: 20091116
  Receipt Date: 20091116
  Transmission Date: 20100525
  Serious: No
  Sender: FDA-Public Use
  Company Number: None

PATIENT
  Age: 72 Year
  Sex: Female

DRUGS (1)
  1. EVOXAC [Suspect]

REACTIONS (2)
  - DYSPNOEA [None]
  - PRODUCT SUBSTITUTION ISSUE [None]
